FAERS Safety Report 4680804-0 (Version None)
Quarter: 2005Q2

REPORT INFORMATION
  Report Type: 
  Country: None (occurrence: None)
  Receive Date: 20050603
  Receipt Date: 20040827
  Transmission Date: 20051028
  Serious: Yes (Life-Threatening, Hospitalization)
  Sender: FDA-Public Use
  Company Number: GB-SOLVAY-00304002936

PATIENT
  Age: 568 Month
  Sex: Female
  Weight: 80 kg

DRUGS (14)
  1. CREON 25000 [Suspect]
     Indication: GASTROINTESTINAL DISORDER
     Dosage: 3 - 4 CAPSULES WITH FOOD
     Route: 048
     Dates: start: 20000101
  2. CREON 25000 [Suspect]
     Dosage: DAILY DOSE: UNK. FREQUENCY:UNKNOWN
     Route: 048
  3. ZOPICLONE [Concomitant]
     Indication: INSOMNIA
     Dosage: DAILY DOSE: UNK. FREQUENCY:AS NEEDED
     Route: 048
     Dates: start: 19990101
  4. ESOMEPRAZOLE [Concomitant]
     Indication: DYSPEPSIA
     Dosage: DAILY DOSE: 40 MG. FREQUENCY:UNKNOWN
     Route: 048
     Dates: start: 20030101
  5. ATORVASTATIN CALCIUM [Concomitant]
     Indication: LIPIDS INCREASED
     Dosage: DAILY DOSE: 10 MG. FREQUENCY:UNKNOWN
     Route: 048
     Dates: start: 20040101
  6. INDAPAMIDE [Concomitant]
     Indication: BLOOD PRESSURE INCREASED
     Dosage: DAILY DOSE: 1.5 MG. FREQUENCY:UNKNOWN
     Route: 048
     Dates: start: 20040201
  7. DOMPERIDONE [Concomitant]
     Indication: NAUSEA
     Dosage: DAILY DOSE: UNK. FREQUENCY:AS NEEDED
     Route: 048
     Dates: start: 19990101
  8. GABAPENTIN [Concomitant]
     Indication: PAIN
     Dosage: DAILY DOSE: 300 MG. FREQUENCY:UNKNOWN
     Route: 048
     Dates: start: 20020101
  9. FLUOXETINE [Concomitant]
     Indication: DEPRESSION
     Dosage: DAILY DOSE: 20 MG. FREQUENCY:UNKNOWN
     Route: 048
     Dates: start: 19960101
  10. MS CONTIN [Concomitant]
     Indication: ILL-DEFINED DISORDER
     Dosage: DAILY DOSE: UNK. FREQUENCY:UNKNOWN
     Route: 065
  11. ORAMORPH SR [Concomitant]
     Indication: ILL-DEFINED DISORDER
     Dosage: DAILY DOSE: UNK. FREQUENCY:UNKNOWN
     Route: 065
  12. OLMESARTAN [Concomitant]
     Indication: ILL-DEFINED DISORDER
     Dosage: DAILY DOSE: 20 MG. FREQUENCY:UNKNOWN
     Route: 065
  13. HORMON HRT [Concomitant]
     Indication: ILL-DEFINED DISORDER
     Dosage: DAILY DOSE: UNK. FREQUENCY:UNKNOWN
     Route: 065
  14. ENLIVE [Concomitant]
     Indication: ILL-DEFINED DISORDER
     Dosage: DAILY DOSE: UNK. FREQUENCY:UNKNOWN
     Route: 065

REACTIONS (5)
  - CROHN'S DISEASE [None]
  - INTESTINAL PERFORATION [None]
  - LARGE INTESTINE PERFORATION [None]
  - NEOPLASM MALIGNANT [None]
  - PERITONITIS [None]
